FAERS Safety Report 4537005-6 (Version None)
Quarter: 2004Q4

REPORT INFORMATION
  Report Type: 
  Country: None (occurrence: None)
  Receive Date: 20041223
  Receipt Date: 20031017
  Transmission Date: 20050328
  Serious: Yes (Hospitalization)
  Sender: FDA-Public Use
  Company Number: BW-BRISTOL-MYERS SQUIBB COMPANY-12427472

PATIENT
  Age: 34 Year
  Sex: Male

DRUGS (4)
  1. EFAVIRENZ [Suspect]
     Indication: HIV INFECTION
     Dosage: HOLD ALL STUDY MEDICATIONS
  2. DIDANOSINE [Suspect]
     Indication: HIV INFECTION
     Dosage: HOLD ALL STUDY MEDICATIONS
  3. STAVUDINE [Suspect]
     Indication: HIV INFECTION
     Dates: start: 20031029
  4. ZIDOVUDINE [Suspect]
     Indication: HIV INFECTION
     Dosage: HOLD ALL STUDY MEDICATIONS
     Dates: end: 20031009

REACTIONS (11)
  - ANAEMIA [None]
  - ASTHENIA [None]
  - DEHYDRATION [None]
  - DIARRHOEA [None]
  - DYSURIA [None]
  - FLANK PAIN [None]
  - GAMMA-GLUTAMYLTRANSFERASE INCREASED [None]
  - MOBILITY DECREASED [None]
  - PNEUMONIA [None]
  - PYELONEPHRITIS [None]
  - URINARY TRACT INFECTION [None]
